FAERS Safety Report 4915239-6 (Version None)
Quarter: 2006Q1

REPORT INFORMATION
  Report Type: 
  Country: None (occurrence: None)
  Receive Date: 20060217
  Receipt Date: 20060119
  Transmission Date: 20060701
  Serious: Yes (Life-Threatening, Hospitalization)
  Sender: FDA-Public Use
  Company Number: 2006SE00437

PATIENT
  Age: 1008 Month
  Sex: Male
  Weight: 80 kg

DRUGS (3)
  1. LOSEC [Suspect]
     Indication: ULCER
     Route: 048
     Dates: start: 20041001, end: 20051217
  2. ZOLADEX [Concomitant]
     Indication: PROSTATE CANCER
     Dates: start: 20030101
  3. OXYBRAL [Concomitant]
     Indication: CARDIOVASCULAR DISORDER
     Dosage: TOTAL DAILY DOSE: 2 PILLS
     Route: 048
     Dates: start: 20030101

REACTIONS (13)
  - ALANINE AMINOTRANSFERASE INCREASED [None]
  - ANAEMIA MEGALOBLASTIC [None]
  - ASPARTATE AMINOTRANSFERASE INCREASED [None]
  - ASTHENIA [None]
  - CHROMATURIA [None]
  - DEPRESSION [None]
  - DIZZINESS [None]
  - DYSPNOEA [None]
  - GAMMA-GLUTAMYLTRANSFERASE INCREASED [None]
  - HAEMOLYTIC ANAEMIA [None]
  - JAUNDICE [None]
  - LYMPHOPENIA [None]
  - POLYURIA [None]
